FAERS Safety Report 5154900-8 (Version None)
Quarter: 2006Q4

REPORT INFORMATION
  Report Type: 
  Country: None (occurrence: None)
  Receive Date: 20061117
  Receipt Date: 20061117
  Transmission Date: 20070319
  Serious: No
  Sender: FDA-Public Use
  Company Number: None

PATIENT
  Age: 38 Year
  Sex: Female
  Weight: 54.4316 kg

DRUGS (2)
  1. ACETAMINOPHEN [Suspect]
     Indication: BACK PAIN
     Dosage: 5005G   2-3 TIMES DAILY  ORALLY
     Route: 048
     Dates: start: 20061001, end: 20061108
  2. ACETAMINOPHEN [Suspect]
     Indication: HEADACHE
     Dosage: 5005G   2-3 TIMES DAILY  ORALLY
     Route: 048
     Dates: start: 20061001, end: 20061108

REACTIONS (2)
  - ABDOMINAL PAIN UPPER [None]
  - MUSCULAR WEAKNESS [None]
